FAERS Safety Report 10661582 (Version 2)
Quarter: 2015Q1

REPORT INFORMATION
  Report Type: Spontaneous
  Country: IT (occurrence: IT)
  Receive Date: 20141218
  Receipt Date: 20150228
  Transmission Date: 20150720
  Serious: Yes (Disabling)
  Sender: FDA-Public Use
  Company Number: PHHY2014IT162558

PATIENT
  Age: 67 Year
  Sex: Female

DRUGS (3)
  1. AVASTIN [Suspect]
     Active Substance: BEVACIZUMAB
     Indication: METASTASES TO BONE
     Dosage: 15 MG PER KG, CYCLIC
     Route: 042
     Dates: start: 20111101, end: 20140201
  2. ZOMETA [Suspect]
     Active Substance: ZOLEDRONIC ACID
     Indication: METASTASES TO BONE
     Dosage: 4 MG, MONTHLY
     Route: 042
     Dates: start: 20110401, end: 20121101
  3. FEMARA [Concomitant]
     Active Substance: LETROZOLE
     Indication: BREAST CANCER
     Dosage: 2.5 MG
     Route: 048
     Dates: start: 20110401, end: 20140201

REACTIONS (3)
  - Osteonecrosis of jaw [Recovered/Resolved with Sequelae]
  - Fistula discharge [Recovered/Resolved with Sequelae]
  - Gingival abscess [Recovered/Resolved with Sequelae]

NARRATIVE: CASE EVENT DATE: 20140201
